FAERS Safety Report 6200555-0 (Version None)
Quarter: 2009Q2

REPORT INFORMATION
  Report Type: 
  Country: None (occurrence: None)
  Receive Date: 20090522
  Receipt Date: 20090514
  Transmission Date: 20091009
  Serious: Yes (Other)
  Sender: FDA-Public Use
  Company Number: US-AMGEN-COG347129

PATIENT
  Sex: Female

DRUGS (2)
  1. ENBREL [Suspect]
     Indication: RHEUMATOID ARTHRITIS
     Route: 058
     Dates: start: 20090101
  2. ARAVA [Concomitant]
     Route: 048

REACTIONS (4)
  - ARTHRITIS [None]
  - PNEUMONIA [None]
  - PULMONARY OEDEMA [None]
  - VOMITING [None]
